FAERS Safety Report 25586921 (Version 1)
Quarter: 2025Q3

REPORT INFORMATION
  Report Type: Spontaneous
  Country: US (occurrence: US)
  Receive Date: 20250721
  Receipt Date: 20250721
  Transmission Date: 20251020
  Serious: No
  Sender: Phathom Pharmaceuticals
  Company Number: US-PHATHOM PHARMACEUTICALS INC.-2025PHT01384

PATIENT
  Age: 75 Year
  Sex: Male

DRUGS (9)
  1. VOQUEZNA [Suspect]
     Active Substance: VONOPRAZAN FUMARATE
     Dosage: 20 MG, 1X/DAY
     Route: 048
     Dates: start: 20250412
  2. CLOPIDOGREL [Concomitant]
     Active Substance: CLOPIDOGREL BISULFATE
  3. CELEBREX [Concomitant]
     Active Substance: CELECOXIB
  4. EZETIMIBE [Concomitant]
     Active Substance: EZETIMIBE
  5. PRAVASTATIN [Concomitant]
     Active Substance: PRAVASTATIN
  6. MIRTAZAPINE [Concomitant]
     Active Substance: MIRTAZAPINE
  7. LOSARTAN [Concomitant]
     Active Substance: LOSARTAN
  8. METOPROLOL SUCCINATE [Concomitant]
     Active Substance: METOPROLOL SUCCINATE
  9. LEVOTHYROXINE [Concomitant]
     Active Substance: LEVOTHYROXINE

REACTIONS (4)
  - Pharyngeal swelling [Unknown]
  - Swelling [Unknown]
  - Eructation [Unknown]
  - Diarrhoea [Unknown]

NARRATIVE: CASE EVENT DATE: 20250101
